FAERS Safety Report 7942470-8 (Version None)
Quarter: 2011Q4

REPORT INFORMATION
  Report Type: 
  Country: None (occurrence: None)
  Receive Date: 20111128
  Receipt Date: 20111121
  Transmission Date: 20120403
  Serious: Yes (Other)
  Sender: FDA-Public Use
  Company Number: CA-GLAXOSMITHKLINE-A0954137A

PATIENT
  Sex: Female

DRUGS (6)
  1. XELODA [Suspect]
     Indication: PRODUCT USED FOR UNKNOWN INDICATION
     Route: 065
  2. MICARDIS HCT [Concomitant]
  3. ONDANSETRON [Concomitant]
  4. ATENOLOL [Concomitant]
  5. GRAVOL TAB [Concomitant]
  6. TYKERB [Suspect]
     Indication: BREAST CANCER METASTATIC
     Dosage: 1250MG PER DAY
     Route: 048
     Dates: start: 20110810, end: 20111101

REACTIONS (3)
  - NEOPLASM PROGRESSION [None]
  - BREAST CANCER METASTATIC [None]
  - NEOPLASM MALIGNANT [None]
